FAERS Safety Report 9319202 (Version 2)
Quarter: 2013Q2

REPORT INFORMATION
  Report Type: Spontaneous
  Country: US (occurrence: None)
  Receive Date: 20130523
  Receipt Date: 20130628
  Transmission Date: 20140414
  Serious: Yes (Hospitalization)
  Sender: FDA-Public Use
  Company Number: ACO_36193_2013

PATIENT
  Age: 60 Year
  Sex: Female
  Weight: 59 kg

DRUGS (2)
  1. AMPYRA [Suspect]
     Indication: MULTIPLE SCLEROSIS
     Route: 048
     Dates: start: 2012
  2. SYNTHROID (LEVOTHYROXINE SODIUM) [Concomitant]

REACTIONS (4)
  - Accidental overdose [None]
  - Fear [None]
  - Anxiety [None]
  - Nervousness [None]
